FAERS Safety Report 5991492-5 (Version None)
Quarter: 2008Q4

REPORT INFORMATION
  Report Type: 
  Country: None (occurrence: None)
  Receive Date: 20081211
  Receipt Date: 20081204
  Transmission Date: 20090506
  Serious: Yes (Hospitalization)
  Sender: FDA-Public Use
  Company Number: FR-ASTRAZENECA-2008CG01794

PATIENT
  Sex: Male

DRUGS (4)
  1. CRESTOR [Suspect]
     Route: 048
  2. ANDROTARDYL [Concomitant]
     Indication: ANDROGEN DEFICIENCY
     Dates: end: 20080201
  3. METFORMIN HCL [Concomitant]
     Indication: DIABETES MELLITUS
  4. ACARBOSE [Concomitant]
     Indication: DIABETES MELLITUS

REACTIONS (1)
  - GYNAECOMASTIA [None]
